FAERS Safety Report 8775350 (Version 1)
Quarter: 2012Q4

REPORT INFORMATION
  Report Type: 
  Country: US (occurrence: US)
  Receive Date: 20120910
  Receipt Date: 20120910
  Transmission Date: 20130627
  Serious: Yes (Hospitalization)
  Sender: FDA-Public Use
  Company Number: US-BIOGENIDEC-2012BI034664

PATIENT
  Age: 47 None
  Sex: Female

DRUGS (1)
  1. AVONEX [Suspect]
     Indication: MULTIPLE SCLEROSIS
     Route: 030
     Dates: start: 20100617

REACTIONS (3)
  - Cyst [Recovered/Resolved]
  - Gait disturbance [Recovered/Resolved]
  - Injection site pain [Not Recovered/Not Resolved]
